FAERS Safety Report 9561906 (Version 1)
Quarter: 2013Q3

REPORT INFORMATION
  Report Type: Spontaneous
  Country: JP (occurrence: JP)
  Receive Date: 20130927
  Receipt Date: 20130927
  Transmission Date: 20140515
  Serious: Yes (Other)
  Sender: FDA-Public Use
  Company Number: JP-ASTELLAS-2013JP009816

PATIENT
  Sex: Female

DRUGS (2)
  1. PROGRAF [Suspect]
     Indication: LUPUS NEPHRITIS
     Dosage: 2 MG, UNKNOWN/D
     Route: 048
  2. XELODA [Suspect]
     Route: 048

REACTIONS (3)
  - Intentional drug misuse [Unknown]
  - Red blood cell count decreased [Unknown]
  - Platelet count decreased [Unknown]
